FAERS Safety Report 15891440 (Version 2)
Quarter: 2019Q3

REPORT INFORMATION
  Report Type: Spontaneous
  Country: US (occurrence: US)
  Receive Date: 20190130
  Receipt Date: 20190930
  Transmission Date: 20191004
  Serious: No
  Sender: FDA-Public Use
  Company Number: US-ALLERGAN-1858925US

PATIENT
  Sex: Male

DRUGS (2)
  1. VIIBRYD [Suspect]
     Active Substance: VILAZODONE HYDROCHLORIDE
     Indication: PRODUCT USED FOR UNKNOWN INDICATION
     Dosage: UNK
     Route: 065
  2. VRAYLAR [Suspect]
     Active Substance: CARIPRAZINE
     Indication: BIPOLAR DISORDER
     Dosage: UNK
     Route: 065

REACTIONS (2)
  - Nausea [Unknown]
  - Diarrhoea [Unknown]
